FAERS Safety Report 19085870 (Version 3)
Quarter: 2021Q3

REPORT INFORMATION
  Report Type: Report from Study
  Country: US (occurrence: US)
  Receive Date: 20210402
  Receipt Date: 20210701
  Transmission Date: 20211014
  Serious: No
  Sender: FDA-Public Use
  Company Number: US-ACADIA PHARMACEUTICALS INC.-ACA-2021-PIM-000943

PATIENT
  Age: 78 Year
  Sex: Male
  Weight: 115 kg

DRUGS (9)
  1. NUPLAZID [Suspect]
     Active Substance: PIMAVANSERIN TARTRATE
     Indication: HALLUCINATION
  2. NUPLAZID [Suspect]
     Active Substance: PIMAVANSERIN TARTRATE
     Indication: DELUSION
  3. DUTASTERIDE. [Concomitant]
     Active Substance: DUTASTERIDE
  4. NUPLAZID [Suspect]
     Active Substance: PIMAVANSERIN TARTRATE
     Indication: HALLUCINATION, AUDITORY
     Dosage: 34 MILLIGRAM, QD
     Route: 048
     Dates: start: 20210215, end: 2021
  5. NUPLAZID [Suspect]
     Active Substance: PIMAVANSERIN TARTRATE
     Indication: PARKINSON^S DISEASE PSYCHOSIS
  6. METOPROLOL. [Concomitant]
     Active Substance: METOPROLOL
  7. ECOTRIN [Concomitant]
     Active Substance: ASPIRIN
  8. LAMOTRIGINE. [Concomitant]
     Active Substance: LAMOTRIGINE
     Indication: SEIZURE
  9. SINEMET [Concomitant]
     Active Substance: CARBIDOPA\LEVODOPA

REACTIONS (10)
  - Hallucination, visual [Not Recovered/Not Resolved]
  - Frustration tolerance decreased [Unknown]
  - Emotional disorder [Unknown]
  - Delusion [Recovering/Resolving]
  - Hallucination, auditory [Not Recovered/Not Resolved]
  - Aggression [Recovering/Resolving]
  - Hallucination, visual [Not Recovered/Not Resolved]
  - Hallucination [Not Recovered/Not Resolved]
  - Glassy eyes [Unknown]
  - Drug ineffective [Unknown]

NARRATIVE: CASE EVENT DATE: 202102
